FAERS Safety Report 16176077 (Version 1)
Quarter: 2019Q2

REPORT INFORMATION
  Report Type: Report from Study
  Country: RU (occurrence: RU)
  Receive Date: 20190409
  Receipt Date: 20190409
  Transmission Date: 20190711
  Serious: Yes (Hospitalization, Other)
  Sender: FDA-Public Use
  Company Number: RU-ASTRAZENECA-2019SE51466

PATIENT
  Age: 66 Year
  Sex: Female

DRUGS (1)
  1. BRILINTA [Suspect]
     Active Substance: TICAGRELOR
     Route: 048
     Dates: start: 201811

REACTIONS (7)
  - Nasal polyps [Recovered/Resolved]
  - Gastric disorder [Recovering/Resolving]
  - Decreased appetite [Recovering/Resolving]
  - Rectal neoplasm [Not Recovered/Not Resolved]
  - Pain [Recovering/Resolving]
  - Product use issue [Not Recovered/Not Resolved]
  - Off label use [Not Recovered/Not Resolved]

NARRATIVE: CASE EVENT DATE: 201811
